FAERS Safety Report 22287744 (Version 1)
Quarter: 2023Q2

REPORT INFORMATION
  Report Type: Spontaneous
  Country: FR (occurrence: FR)
  Receive Date: 20230505
  Receipt Date: 20230505
  Transmission Date: 20230722
  Serious: Yes (Other)
  Sender: FDA-Public Use
  Company Number: FR-AMGEN-FRASP2023074384

PATIENT
  Age: 91 Year
  Sex: Female

DRUGS (1)
  1. PROLIA [Suspect]
     Active Substance: DENOSUMAB
     Indication: Osteoporosis
     Dosage: UNK
     Route: 065

REACTIONS (5)
  - Spinal fracture [Unknown]
  - Arthropathy [Unknown]
  - Dental operation [Unknown]
  - Oral pain [Unknown]
  - Eczema [Unknown]

NARRATIVE: CASE EVENT DATE: 20211201
